FAERS Safety Report 8325089-9 (Version None)
Quarter: 2012Q2

REPORT INFORMATION
  Report Type: 
  Country: None (occurrence: None)
  Receive Date: 20120501
  Receipt Date: 20100326
  Transmission Date: 20120825
  Serious: No
  Sender: FDA-Public Use
  Company Number: US-TEVA-2010001797

PATIENT
  Sex: Male
  Weight: 108.96 kg

DRUGS (1)
  1. NUVIGIL [Suspect]
     Indication: SLEEP APNOEA SYNDROME
     Dosage: 150 MILLIGRAM;
     Route: 048
     Dates: start: 20100325

REACTIONS (4)
  - VISION BLURRED [None]
  - HEADACHE [None]
  - NAUSEA [None]
  - HEART RATE INCREASED [None]
